FAERS Safety Report 20852305 (Version 2)
Quarter: 2022Q2

REPORT INFORMATION
  Report Type: Other
  Country: US (occurrence: None)
  Receive Date: 20220520
  Receipt Date: 20220523
  Transmission Date: 20220721
  Serious: Yes (Other)
  Sender: FDA-Public Use
  Company Number: US-ROCHE-3093707

PATIENT
  Sex: Female
  Weight: 212 kg

DRUGS (2)
  1. XOLAIR [Suspect]
     Active Substance: OMALIZUMAB
     Indication: Asthma
     Route: 065
     Dates: end: 20220503
  2. XOLAIR [Suspect]
     Active Substance: OMALIZUMAB

REACTIONS (14)
  - Hypoxia [Unknown]
  - Nasal congestion [Unknown]
  - Respiratory disorder [Unknown]
  - Wheezing [Unknown]
  - Rhonchi [Unknown]
  - Productive cough [Unknown]
  - Orthopnoea [Unknown]
  - Irritability [Unknown]
  - Chest discomfort [Unknown]
  - Conjunctivitis allergic [Unknown]
  - Arthritis [Unknown]
  - Dementia [Unknown]
  - Migraine [Unknown]
  - Sleep apnoea syndrome [Unknown]
